FAERS Safety Report 8464228-6 (Version None)
Quarter: 2012Q2

REPORT INFORMATION
  Report Type: 
  Country: None (occurrence: None)
  Receive Date: 20120625
  Receipt Date: 20120620
  Transmission Date: 20120825
  Serious: Yes (Hospitalization, Other)
  Sender: FDA-Public Use
  Company Number: BR-ROCHE-1062362

PATIENT
  Sex: Female

DRUGS (14)
  1. SIMVASTATIN [Concomitant]
     Route: 065
  2. ALENIA (BRAZIL) [Concomitant]
     Route: 065
  3. ENALAPRIL MALEATE [Concomitant]
     Route: 065
  4. BAMIFIX [Concomitant]
     Route: 065
  5. PREDNISONE [Concomitant]
     Route: 065
  6. CAMPHOR/METHYL SALICYLATE [Concomitant]
     Route: 065
  7. CALCIUM CARBONATE [Concomitant]
     Route: 065
  8. METFORMIN HCL [Concomitant]
     Route: 065
  9. FLUOXETINE HCL [Concomitant]
     Route: 065
  10. XOLAIR [Suspect]
     Indication: ASTHMA
     Route: 058
  11. ROFLUMILAST [Concomitant]
     Route: 065
  12. INSULIN [Concomitant]
     Route: 065
  13. XOLAIR [Suspect]
     Route: 058
     Dates: start: 20111201
  14. BUDESONIDE [Concomitant]
     Route: 065

REACTIONS (4)
  - BLOOD PRESSURE DECREASED [None]
  - ASTHMATIC CRISIS [None]
  - MALAISE [None]
  - PNEUMONIA [None]
